FAERS Safety Report 9444914 (Version 2)
Quarter: 2013Q3

REPORT INFORMATION
  Report Type: Spontaneous
  Country: US (occurrence: US)
  Receive Date: 20130807
  Receipt Date: 20130902
  Transmission Date: 20140515
  Serious: Yes (Other)
  Sender: FDA-Public Use
  Company Number: US-AMGEN-USASP2013054155

PATIENT
  Age: 19 Year
  Sex: Female
  Weight: 58.5 kg

DRUGS (7)
  1. ENBREL [Suspect]
     Indication: RHEUMATOID ARTHRITIS
     Dosage: 45 MG, QWK
     Route: 058
     Dates: start: 20110906, end: 201305
  2. FOLIC ACID [Concomitant]
     Indication: SUPPLEMENTATION THERAPY
     Dosage: 1 MG, QD
     Route: 048
     Dates: start: 2006
  3. MELOXICAM [Concomitant]
     Dosage: 7.5 MG, QD
     Route: 048
     Dates: start: 20130711
  4. MESALAMINE [Concomitant]
     Indication: INFLAMMATION
     Dosage: 100 MG, QHS
     Dates: start: 20130711
  5. METHOTREXATE [Concomitant]
     Dosage: 15 MG, QWK
     Route: 048
     Dates: start: 2006
  6. LOW-OGESTREL [Concomitant]
     Indication: CONTRACEPTION
     Dosage: 0.3-30, QD
     Route: 048
     Dates: start: 2011
  7. PREDNISONE [Concomitant]
     Dosage: 4 MG, QD
     Route: 048
     Dates: start: 2006

REACTIONS (4)
  - Proctitis ulcerative [Not Recovered/Not Resolved]
  - Rectal haemorrhage [Not Recovered/Not Resolved]
  - Melaena [Unknown]
  - Pyrexia [Not Recovered/Not Resolved]
